FAERS Safety Report 16434819 (Version 3)
Quarter: 2019Q3

REPORT INFORMATION
  Report Type: Spontaneous
  Country: US (occurrence: US)
  Receive Date: 20190614
  Receipt Date: 20190729
  Transmission Date: 20191004
  Serious: No
  Sender: FDA-Public Use
  Company Number: US-JNJFOC-20190614317

PATIENT
  Age: 55 Year
  Sex: Male
  Weight: 72.64 kg

DRUGS (3)
  1. FENTANYL. [Suspect]
     Active Substance: FENTANYL
     Route: 062
  2. FENTANYL. [Suspect]
     Active Substance: FENTANYL
     Indication: SPINAL OPERATION
     Route: 062
  3. VALIUM [Concomitant]
     Active Substance: DIAZEPAM
     Route: 065

REACTIONS (7)
  - Underdose [Not Recovered/Not Resolved]
  - Product complaint [Unknown]
  - Wrong technique in product usage process [Unknown]
  - Off label use [Unknown]
  - Product administration error [Unknown]
  - Pain of skin [Unknown]
  - Product use in unapproved indication [Unknown]
